FAERS Safety Report 19473858 (Version 1)
Quarter: 2021Q2

REPORT INFORMATION
  Report Type: Spontaneous
  Country: GB (occurrence: GB)
  Receive Date: 20210629
  Receipt Date: 20210629
  Transmission Date: 20210717
  Serious: Yes (Other)
  Sender: FDA-Public Use
  Company Number: GB-GLAXOSMITHKLINE-GBCH2021041193

PATIENT
  Age: 14 Year
  Sex: Female
  Weight: 19 kg

DRUGS (16)
  1. BACLOFEN. [Concomitant]
     Active Substance: BACLOFEN
     Indication: ILL-DEFINED DISORDER
     Dosage: UNK, (USE THIS NEW DOSE ?? 7MG (7ML)  TO BE TAKEN FOU...)
     Route: 065
     Dates: start: 20210507
  2. FERROUS FUMARATE [Concomitant]
     Active Substance: FERROUS FUMARATE
     Indication: ILL-DEFINED DISORDER
     Dosage: UNK UNK, TID, (280MG (10ML)  TO BE TAKEN THREE TIMES DAILY)
     Route: 065
     Dates: start: 20210507
  3. CERATONIA [Concomitant]
     Indication: ILL-DEFINED DISORDER
     Dosage: UNK UNK, 6D (1.7G (1 SCOOP) PER 200ML FEED X 6 TIMES PER DAY)
     Route: 065
     Dates: start: 20210528
  4. LANSOPRAZOLE. [Concomitant]
     Active Substance: LANSOPRAZOLE
     Indication: ILL-DEFINED DISORDER
     Dosage: UNK, (DISSOLVE ONE TABLET IN 15MLS OF WATER AND GIVE ...)
     Route: 065
     Dates: start: 20210507
  5. CHLORPHENAMINE [Concomitant]
     Active Substance: CHLORPHENIRAMINE MALEATE
     Indication: ILL-DEFINED DISORDER
     Dosage: UNK UNK, BID, (5ML TWICE A DAY FOR 5 DAYS)
     Route: 065
     Dates: start: 20210611, end: 20210616
  6. PARACETAMOL [Concomitant]
     Active Substance: ACETAMINOPHEN
     Indication: ILL-DEFINED DISORDER
     Dosage: UNK, QID, (TAKE ONE OR TWO 5ML SPOONFULS UP TO FOUR TIMES)
     Route: 065
     Dates: start: 20210519, end: 20210524
  7. LACTULOSE. [Concomitant]
     Active Substance: LACTULOSE
     Indication: ILL-DEFINED DISORDER
     Dosage: UNK UNK, BID, (5ML TWICE DAILY)
     Route: 065
     Dates: start: 20210507, end: 20210512
  8. LAXIDO (MACROGOL + POTASSIUM CHLORIDE + SODIUM BICARBONATE + SODIUM CH [Concomitant]
     Active Substance: POLYETHYLENE GLYCOL 3350\POTASSIUM CHLORIDE\SODIUM BICARBONATE\SODIUM CHLORIDE
     Indication: ILL-DEFINED DISORDER
     Dosage: UNK UNK, BID, (TAKE ONE SACHET TWICE A DAY, CAN INCREASE UP TO...)
     Route: 065
     Dates: start: 20210512
  9. SODIUM CHLORIDE. [Concomitant]
     Active Substance: SODIUM CHLORIDE
     Indication: ILL-DEFINED DISORDER
     Dosage: UNK, (USE AS DIRECTED)
     Route: 065
     Dates: start: 20210507, end: 20210514
  10. NON?MEDICINAL PRODUCTS [Concomitant]
     Indication: ILL-DEFINED DISORDER
     Dosage: UNK, (USE AS DIRECTED)
     Route: 065
     Dates: start: 20210507
  11. TRIHEXYPHENIDYL HYDROCHLORIDE. [Concomitant]
     Active Substance: TRIHEXYPHENIDYL HYDROCHLORIDE
     Indication: ILL-DEFINED DISORDER
     Dosage: UNK UNK, BID, (2MG  (2ML) EVERY 12HRS AS DIRECTED)
     Route: 065
     Dates: start: 20210507
  12. HYOSCINE HYDROBROMIDE [Suspect]
     Active Substance: SCOPOLAMINE HYDROBROMIDE
     Indication: PRODUCT USED FOR UNKNOWN INDICATION
     Dosage: UNK, (1MG/72HOURS)
     Route: 065
     Dates: start: 20210601
  13. DIAZEPAM. [Concomitant]
     Active Substance: DIAZEPAM
     Indication: ILL-DEFINED DISORDER
     Dosage: UNK, (USE AS DIRECTED)
     Route: 065
     Dates: start: 20210315, end: 20210507
  14. HYOSCINE HYDROBROMIDE [Concomitant]
     Active Substance: SCOPOLAMINE HYDROBROMIDE
     Indication: ILL-DEFINED DISORDER
     Dosage: UNK, (APPLY ONE PATCH EVERY 72 HOURS)
     Route: 065
     Dates: start: 20210507
  15. NUTRITIONAL SUPPLEMENT [Concomitant]
     Active Substance: DIETARY SUPPLEMENT
     Indication: ILL-DEFINED DISORDER
     Dosage: UNK, (TAKE AS DIRECTED ? TO COVER FOR 11/05/21 DELIVERY)
     Route: 065
     Dates: start: 20210507
  16. CHLORAL HYDRATE [Concomitant]
     Active Substance: CHLORAL HYDRATE
     Indication: ILL-DEFINED DISORDER
     Dosage: UNK UNK, QD, (345MG (3.45 ML) AT NIGHT AS DIRECTED)
     Route: 065
     Dates: start: 20210507

REACTIONS (1)
  - Application site rash [Recovering/Resolving]

NARRATIVE: CASE EVENT DATE: 20210624
